FAERS Safety Report 9307033 (Version 6)
Quarter: 2014Q2

REPORT INFORMATION
  Report Type: Spontaneous
  Country: US (occurrence: US)
  Receive Date: 20130523
  Receipt Date: 20140428
  Transmission Date: 20141212
  Serious: Yes (Hospitalization, Other)
  Sender: FDA-Public Use
  Company Number: US-009507513-1305USA012250

PATIENT
  Sex: Male
  Weight: 102.49 kg

DRUGS (1)
  1. PROPECIA [Suspect]
     Indication: ANDROGENETIC ALOPECIA
     Dosage: 1 MG, UNK
     Route: 048
     Dates: start: 20050707, end: 20090313

REACTIONS (15)
  - Biopsy testes [Unknown]
  - Gun shot wound [Unknown]
  - Renal failure acute [Unknown]
  - Cognitive disorder [Not Recovered/Not Resolved]
  - Azoospermia [Unknown]
  - Colitis [Unknown]
  - Testicular failure [Unknown]
  - Hypospermia [Unknown]
  - Varicocele [Unknown]
  - Blood testosterone decreased [Unknown]
  - Oestradiol decreased [Unknown]
  - Spermatogenesis abnormal [Unknown]
  - Infertility [Not Recovered/Not Resolved]
  - Sexual dysfunction [Not Recovered/Not Resolved]
  - Hypogonadism [Unknown]
